FAERS Safety Report 6749903-3 (Version None)
Quarter: 2010Q2

REPORT INFORMATION
  Report Type: 
  Country: None (occurrence: None)
  Receive Date: 20100601
  Receipt Date: 20100524
  Transmission Date: 20101027
  Serious: Yes (Other)
  Sender: FDA-Public Use
  Company Number: US-BRISTOL-MYERS SQUIBB COMPANY-15119357

PATIENT
  Sex: Male

DRUGS (5)
  1. CYTOXAN [Suspect]
     Indication: CHEMOTHERAPY
  2. ETOPOSIDE [Suspect]
     Indication: CHEMOTHERAPY
  3. VINCRISTINE [Suspect]
     Indication: CHEMOTHERAPY
  4. ADRIAMYCIN PFS [Suspect]
     Indication: CHEMOTHERAPY
  5. IDARUBICIN HCL [Suspect]
     Indication: CHEMOTHERAPY

REACTIONS (1)
  - ACUTE MYELOID LEUKAEMIA [None]
